FAERS Safety Report 10743281 (Version 1)
Quarter: 2015Q1

REPORT INFORMATION
  Report Type: Spontaneous
  Country: AU (occurrence: AU)
  Receive Date: 20150127
  Receipt Date: 20150127
  Transmission Date: 20150721
  Serious: Yes (Other)
  Sender: FDA-Public Use
  Company Number: PHHY2015AU007088

PATIENT
  Sex: Female

DRUGS (2)
  1. PROTOS//STRONTIUM RANELATE [Concomitant]
     Indication: PRODUCT USED FOR UNKNOWN INDICATION
     Route: 065
  2. ACLASTA [Suspect]
     Active Substance: ZOLEDRONIC ACID
     Indication: PRODUCT USED FOR UNKNOWN INDICATION
     Dosage: YEARLY
     Route: 042

REACTIONS (6)
  - Intervertebral disc degeneration [Unknown]
  - Gait disturbance [Unknown]
  - Pain [Recovered/Resolved]
  - Thoracic vertebral fracture [Unknown]
  - Foot fracture [Recovering/Resolving]
  - Fall [Unknown]
